FAERS Safety Report 26003521 (Version 4)
Quarter: 2025Q4

REPORT INFORMATION
  Report Type: Spontaneous
  Country: US (occurrence: US)
  Receive Date: 20251106
  Receipt Date: 20251209
  Transmission Date: 20260117
  Serious: No
  Sender: SANOFI AVENTIS
  Company Number: US-SA-2025SA322187

PATIENT
  Age: 50 Year
  Sex: Female

DRUGS (2)
  1. DUPIXENT [Suspect]
     Active Substance: DUPILUMAB
     Indication: Idiopathic urticaria
     Dosage: 300 MG, QOW
     Route: 058
     Dates: start: 202508
  2. IMODIUM [Suspect]
     Active Substance: LOPERAMIDE HYDROCHLORIDE

REACTIONS (7)
  - Visual impairment [Unknown]
  - Ear congestion [Unknown]
  - Abdominal pain [Unknown]
  - Eye disorder [Recovering/Resolving]
  - Diarrhoea [Recovering/Resolving]
  - Dizziness [Unknown]
  - Eye pruritus [Unknown]

NARRATIVE: CASE EVENT DATE: 20251121
